FAERS Safety Report 10045477 (Version 2)
Quarter: 2014Q1

REPORT INFORMATION
  Report Type: Spontaneous
  Country: GB (occurrence: GB)
  Receive Date: 20140328
  Receipt Date: 20140328
  Transmission Date: 20141002
  Serious: Yes (Other)
  Sender: FDA-Public Use
  Company Number: PHHY2013GB116176

PATIENT
  Age: 16 Year
  Sex: Female

DRUGS (1)
  1. OLANZAPINE [Suspect]
     Indication: MAJOR DEPRESSION
     Dosage: 20 MG, UNK

REACTIONS (4)
  - Off label use [Unknown]
  - Convulsion [Unknown]
  - Hallucination, auditory [Recovered/Resolved]
  - Drug ineffective [Unknown]
